FAERS Safety Report 13642052 (Version 2)
Quarter: 2017Q2

REPORT INFORMATION
  Report Type: Spontaneous
  Country: RU (occurrence: RU)
  Receive Date: 20170612
  Receipt Date: 20170613
  Transmission Date: 20170830
  Serious: Yes (Other)
  Sender: FDA-Public Use
  Company Number: RU-ROCHE-1942515

PATIENT
  Age: 64 Year
  Sex: Female

DRUGS (14)
  1. XELODA [Suspect]
     Active Substance: CAPECITABINE
     Dosage: 2.5G FOR 1 DAY PER OS
     Route: 048
     Dates: start: 201506, end: 201508
  2. HERCEPTIN [Suspect]
     Active Substance: TRASTUZUMAB
     Indication: HER-2 POSITIVE BREAST CANCER
     Dosage: 6MG/KG ONCE IN 3 WEEKS
     Route: 042
     Dates: start: 20121224, end: 201401
  3. VINORELBINE [Concomitant]
     Active Substance: VINORELBINE\VINORELBINE TARTRATE
     Indication: HER-2 POSITIVE BREAST CANCER
     Dosage: 30MG/M2 ON 1ST AND 8TH DAYS
     Route: 065
     Dates: start: 20121224, end: 20130101
  4. 5-FLUOROURACIL [Concomitant]
     Active Substance: FLUOROURACIL
     Route: 065
  5. KADCYLA [Suspect]
     Active Substance: ADO-TRASTUZUMAB EMTANSINE
     Dosage: 3MG/KG PER 21 DAYS
     Route: 042
     Dates: start: 201606
  6. DOXORUBICIN [Concomitant]
     Active Substance: DOXORUBICIN
     Route: 065
  7. KADCYLA [Suspect]
     Active Substance: ADO-TRASTUZUMAB EMTANSINE
     Indication: HER-2 POSITIVE BREAST CANCER
     Dosage: 3.6MG/KG PER 21 DAYS
     Route: 042
     Dates: start: 201509, end: 201606
  8. XELODA [Suspect]
     Active Substance: CAPECITABINE
     Indication: HER-2 POSITIVE BREAST CANCER
     Route: 048
     Dates: start: 20121224, end: 20130520
  9. PACLITAXEL. [Concomitant]
     Active Substance: PACLITAXEL
     Indication: HER-2 POSITIVE BREAST CANCER
     Dosage: 175MG/M2 NO.6 ONCE PER 3 WEEKS
     Route: 065
     Dates: start: 20101023, end: 20110301
  10. LAPATINIB [Concomitant]
     Active Substance: LAPATINIB
     Indication: HER-2 POSITIVE BREAST CANCER
     Dosage: 1250MG 5 TABLETS
     Route: 048
  11. FEMARA [Concomitant]
     Active Substance: LETROZOLE
     Indication: HER-2 POSITIVE BREAST CANCER
     Dosage: 2.5 MG PER OS DAILY
     Route: 048
     Dates: start: 201411, end: 201506
  12. XELODA [Suspect]
     Active Substance: CAPECITABINE
     Dosage: 3.5G FOR 1 DAY PER OS
     Route: 048
  13. CYCLOPHOSPHAMIDE. [Concomitant]
     Active Substance: CYCLOPHOSPHAMIDE
     Route: 065
  14. ANASTROZOLE. [Concomitant]
     Active Substance: ANASTROZOLE
     Indication: HER-2 POSITIVE BREAST CANCER
     Dosage: 1MG PER OS DAILY
     Route: 048
     Dates: start: 201409, end: 201411

REACTIONS (9)
  - Asthenia [Unknown]
  - Left ventricular dysfunction [Unknown]
  - Palmar-plantar erythrodysaesthesia syndrome [Recovered/Resolved]
  - Thrombocytopenia [Recovered/Resolved]
  - Stomatitis [Recovered/Resolved]
  - Leukopenia [Recovered/Resolved]
  - Erysipelas [Recovered/Resolved]
  - Hepatotoxicity [Unknown]
  - Nausea [Unknown]
